FAERS Safety Report 7200177-9 (Version None)
Quarter: 2010Q4

REPORT INFORMATION
  Report Type: 
  Country: None (occurrence: None)
  Receive Date: 20101228
  Receipt Date: 20101216
  Transmission Date: 20110411
  Serious: Yes (Hospitalization)
  Sender: FDA-Public Use
  Company Number: US-ALEXION-A201001495

PATIENT
  Sex: Male

DRUGS (10)
  1. SOLIRIS [Suspect]
     Indication: PAROXYSMAL NOCTURNAL HAEMOGLOBINURIA
     Dosage: 600 MG, QWX4
     Route: 042
     Dates: start: 20100901
  2. SOLIRIS [Suspect]
     Dosage: 900 MG, Q2W
  3. POTASSIUM [Concomitant]
     Dosage: UNK
  4. BACTRIM [Concomitant]
     Dosage: UNK
  5. DILAUDID [Concomitant]
     Dosage: UNK
     Route: 048
  6. PREDNISONE [Concomitant]
     Dosage: UNK
     Route: 048
  7. FOLIC ACID [Concomitant]
     Dosage: UNK
     Route: 048
  8. NAPROXEN [Concomitant]
     Dosage: UNK
     Route: 048
  9. PERCOCET [Concomitant]
     Dosage: UNK
     Route: 048
  10. PRILOSEC [Concomitant]
     Dosage: UNK
     Route: 048

REACTIONS (4)
  - HAEMOGLOBIN DECREASED [None]
  - NON-CARDIAC CHEST PAIN [None]
  - SINUS TACHYCARDIA [None]
  - TENDERNESS [None]
